FAERS Safety Report 13145679 (Version 5)
Quarter: 2017Q1

REPORT INFORMATION
  Report Type: Report from Study
  Country: US (occurrence: US)
  Receive Date: 20170124
  Receipt Date: 20170303
  Transmission Date: 20170428
  Serious: Yes (Hospitalization, Other)
  Sender: FDA-Public Use
  Company Number: US-GILEAD-2017-0254229

PATIENT
  Age: 62 Year
  Sex: Male
  Weight: 94.79 kg

DRUGS (16)
  1. LANTUS [Concomitant]
     Active Substance: INSULIN GLARGINE
     Dosage: 80 IU, QHS
     Route: 065
  2. MULTIVITAMIN                       /00097801/ [Concomitant]
     Active Substance: VITAMINS
     Dosage: 1 DF, QD
     Route: 065
  3. SOFOSBUVIR [Suspect]
     Active Substance: SOFOSBUVIR
     Indication: CHRONIC HEPATITIS C
     Dosage: 400 MG, UNK
     Route: 048
     Dates: start: 20161215
  4. CLOPIDOGREL [Concomitant]
     Active Substance: CLOPIDOGREL BISULFATE
     Dosage: 75 MG, QD
     Route: 065
  5. VALSARTAN AND HYDROCHLOROTHIAZIDE [Concomitant]
     Active Substance: HYDROCHLOROTHIAZIDE\VALSARTAN
     Dosage: 1 DF, QD
     Route: 065
  6. VITAMIN D3 [Concomitant]
     Active Substance: CHOLECALCIFEROL
     Dosage: 400 IU, QD
     Route: 065
  7. RIBAVIRIN. [Suspect]
     Active Substance: RIBAVIRIN
     Indication: PRODUCT USED FOR UNKNOWN INDICATION
     Route: 065
  8. CIPRO [Concomitant]
     Active Substance: CIPROFLOXACIN HYDROCHLORIDE
     Indication: PROPHYLAXIS
  9. VICTOZA [Concomitant]
     Active Substance: LIRAGLUTIDE
     Dosage: 1 DF, QD 2 PAK INJECTION
     Route: 050
  10. FOLIC ACID. [Concomitant]
     Active Substance: FOLIC ACID
     Dosage: 800 UG, QD
     Route: 065
  11. CALCIUM + D DUETTO [Concomitant]
     Dosage: 1 DF, QD
     Route: 065
  12. SIMVASTATIN. [Concomitant]
     Active Substance: SIMVASTATIN
     Dosage: 40 MG, QD
     Route: 065
  13. ULTRAM [Concomitant]
     Active Substance: TRAMADOL HYDROCHLORIDE
     Dosage: 50 MG, PRN EVERY 6 HOURS
     Route: 065
  14. ASPIRIN                            /00002701/ [Concomitant]
     Active Substance: ASPIRIN
     Dosage: 81 MG, QD
     Route: 065
  15. VITAMIN E                          /00110501/ [Concomitant]
     Active Substance: TOCOPHEROL
     Dosage: 400 IU, QD
     Route: 065
  16. FLOMAX [Concomitant]
     Active Substance: TAMSULOSIN HYDROCHLORIDE
     Dosage: 0.4 MG, QD
     Route: 065

REACTIONS (11)
  - Pyrexia [Recovering/Resolving]
  - Rash macular [Not Recovered/Not Resolved]
  - Insomnia [Unknown]
  - Pruritus [Not Recovered/Not Resolved]
  - Transurethral prostatectomy [Recovering/Resolving]
  - Drug dose omission [Unknown]
  - Erythema [Not Recovered/Not Resolved]
  - Blood glucose increased [Recovered/Resolved]
  - Peripheral swelling [Not Recovered/Not Resolved]
  - Unevaluable event [Recovered/Resolved]
  - Chills [Recovered/Resolved]

NARRATIVE: CASE EVENT DATE: 20170207
